FAERS Safety Report 6054538-4 (Version None)
Quarter: 2009Q1

REPORT INFORMATION
  Report Type: 
  Country: None (occurrence: None)
  Receive Date: 20090127
  Receipt Date: 20090121
  Transmission Date: 20090719
  Serious: Yes (Hospitalization, Other)
  Sender: FDA-Public Use
  Company Number: PHBS2008RU06714

PATIENT
  Age: 54 Year
  Sex: Male

DRUGS (4)
  1. CYCLOSPORINE [Suspect]
     Indication: RENAL TRANSPLANT
     Route: 065
  2. CYCLOSPORINE [Suspect]
     Dosage: 150 MG PER DAY
  3. PREDNISOLONE [Suspect]
     Indication: RENAL TRANSPLANT
     Dosage: UNK
     Dates: start: 19890101
  4. AZATHIOPRINE [Concomitant]
     Indication: RENAL TRANSPLANT

REACTIONS (8)
  - ANURIA [None]
  - CHRONIC ALLOGRAFT NEPHROPATHY [None]
  - DEEP VEIN THROMBOSIS [None]
  - RENAL TRANSPLANT [None]
  - RENAL VEIN THROMBOSIS [None]
  - THROMBOPHLEBITIS SUPERFICIAL [None]
  - TYPE 2 DIABETES MELLITUS [None]
  - VENA CAVA FILTER INSERTION [None]
